FAERS Safety Report 9657783 (Version 1)
Quarter: 2013Q4

REPORT INFORMATION
  Report Type: Spontaneous
  Country: US (occurrence: US)
  Receive Date: 20131030
  Receipt Date: 20131030
  Transmission Date: 20140711
  Serious: Yes (Other)
  Sender: FDA-Public Use
  Company Number: CHPA2013US016427

PATIENT
  Age: 70 Year
  Sex: Female

DRUGS (1)
  1. KERI SHEA BUTTER [Suspect]
     Indication: DRY SKIN
     Dosage: UNK, UNK
     Route: 061

REACTIONS (4)
  - Myelitis transverse [Not Recovered/Not Resolved]
  - Osteoarthritis [Not Recovered/Not Resolved]
  - Cataract [Recovered/Resolved]
  - Visual impairment [Recovered/Resolved]
